FAERS Safety Report 5366265-7 (Version None)
Quarter: 2007Q2

REPORT INFORMATION
  Report Type: 
  Country: None (occurrence: None)
  Receive Date: 20070619
  Receipt Date: 20070619
  Transmission Date: 20071010
  Serious: Yes (Hospitalization)
  Sender: FDA-Public Use
  Company Number: None

PATIENT
  Age: 77 Year
  Sex: Female
  Weight: 124.2856 kg

DRUGS (3)
  1. METOPROLOL SUCCINATE [Suspect]
     Indication: CORONARY ARTERY DISEASE
     Dosage: 50MG BID PO
     Route: 048
     Dates: start: 20060501, end: 20070201
  2. METOPROLOL SUCCINATE [Suspect]
     Indication: HYPERTENSION
     Dosage: 50MG BID PO
     Route: 048
     Dates: start: 20060501, end: 20070201
  3. METOPROLOL SUCCINATE [Suspect]
     Indication: MYOCARDIAL INFARCTION
     Dosage: 50MG BID PO
     Route: 048
     Dates: start: 20060501, end: 20070201

REACTIONS (2)
  - FALL [None]
  - SICK SINUS SYNDROME [None]
